FAERS Safety Report 7602757-5 (Version None)
Quarter: 2011Q3

REPORT INFORMATION
  Report Type: 
  Country: None (occurrence: None)
  Receive Date: 20110712
  Receipt Date: 20110628
  Transmission Date: 20111222
  Serious: Yes (Hospitalization)
  Sender: FDA-Public Use
  Company Number: NZ-CELGENEUS-118-21880-11052561

PATIENT
  Sex: Male
  Weight: 88 kg

DRUGS (10)
  1. DEXAMETHASONE [Suspect]
     Indication: MULTIPLE MYELOMA
     Dosage: 10 MILLIGRAM
     Route: 048
     Dates: start: 20110525
  2. DEXAMETHASONE [Suspect]
     Dosage: 10 MILLIGRAM
     Route: 048
     Dates: start: 20090525
  3. REVLIMID [Suspect]
     Indication: MULTIPLE MYELOMA
     Dosage: 15 MILLIGRAM
     Route: 048
     Dates: start: 20110509, end: 20110602
  4. REVLIMID [Suspect]
     Dosage: 15 MILLIGRAM
     Route: 048
     Dates: start: 20090525
  5. MORPHINE SULFATE [Concomitant]
     Indication: PAIN
     Route: 048
     Dates: start: 20090922, end: 20110516
  6. ACYCLOVIR [Concomitant]
     Indication: PROPHYLAXIS
     Dosage: 800 MILLIGRAM
     Route: 048
     Dates: start: 20090525
  7. MORPHINE SULFATE [Concomitant]
     Indication: PAIN MANAGEMENT
     Dosage: 20 MILLIGRAM
     Route: 048
     Dates: start: 20110611, end: 20110613
  8. CODEINE PINOS [Concomitant]
     Indication: PAIN MANAGEMENT
     Route: 048
     Dates: start: 20110610, end: 20110610
  9. MORPHINE SULFATE [Concomitant]
     Route: 048
     Dates: start: 20110610, end: 20110611
  10. COTRIM [Concomitant]
     Indication: PROPHYLAXIS
     Dosage: 1920 MILLIGRAM
     Route: 048
     Dates: start: 20090525

REACTIONS (11)
  - NERVE ROOT COMPRESSION [None]
  - PNEUMONIA [None]
  - CHRONIC OBSTRUCTIVE PULMONARY DISEASE [None]
  - MOBILITY DECREASED [None]
  - POST PROCEDURAL COMPLICATION [None]
  - DEVICE DISLOCATION [None]
  - CONDITION AGGRAVATED [None]
  - MEDICAL DEVICE COMPLICATION [None]
  - NEUTROPENIA [None]
  - INTERVERTEBRAL DISC SPACE NARROWING [None]
  - MUSCULOSKELETAL PAIN [None]
